FAERS Safety Report 8188929-2 (Version None)
Quarter: 2012Q1

REPORT INFORMATION
  Report Type: 
  Country: None (occurrence: None)
  Receive Date: 20120306
  Receipt Date: 20120301
  Transmission Date: 20120608
  Serious: Yes (Death, Hospitalization, Other)
  Sender: FDA-Public Use
  Company Number: JP-ROCHE-641330

PATIENT
  Sex: Female
  Weight: 50 kg

DRUGS (14)
  1. ACTEMRA [Suspect]
     Route: 041
     Dates: start: 20090224, end: 20090224
  2. PREDNISOLONE [Concomitant]
     Route: 048
  3. RABEPRAZOLE SODIUM [Concomitant]
     Route: 048
  4. PREDNISOLONE [Concomitant]
     Route: 048
  5. PROGRAF [Concomitant]
     Route: 048
  6. STROMECTOL [Concomitant]
     Dates: start: 20080701
  7. ACTEMRA [Suspect]
     Route: 041
     Dates: start: 20090324, end: 20090324
  8. CIPROFLOXACIN HYDROCHLORIDE [Concomitant]
     Dates: end: 20090428
  9. PREDNISOLONE [Concomitant]
  10. SULFAMETHOXAZOLE AND TRIMETHOPRIM [Concomitant]
  11. ACTEMRA [Suspect]
     Indication: RHEUMATOID ARTHRITIS
     Route: 041
     Dates: start: 20090123, end: 20090123
  12. MUCODYNE [Concomitant]
     Route: 048
  13. ALENDRONATE SODIUM [Concomitant]
     Route: 048
  14. BUCILLAMINE [Suspect]
     Indication: RHEUMATOID ARTHRITIS
     Route: 048

REACTIONS (4)
  - PNEUMONIA PNEUMOCOCCAL [None]
  - INTERSTITIAL LUNG DISEASE [None]
  - RHEUMATOID VASCULITIS [None]
  - TYPE 2 DIABETES MELLITUS [None]
